FAERS Safety Report 23160277 (Version 1)
Quarter: 2023Q4

REPORT INFORMATION
  Report Type: Spontaneous
  Country: CN (occurrence: CN)
  Receive Date: 20231108
  Receipt Date: 20231108
  Transmission Date: 20240109
  Serious: Yes (Other)
  Sender: FDA-Public Use
  Company Number: CN-PFIZER INC-PV202300179955

PATIENT
  Age: 49 Year
  Sex: Male

DRUGS (3)
  1. VFEND [Interacting]
     Active Substance: VORICONAZOLE
     Indication: COVID-19 pneumonia
     Dosage: 200 MG, 2X/DAY
     Route: 041
     Dates: start: 20230517, end: 20230518
  2. PAXLOVID [Interacting]
     Active Substance: NIRMATRELVIR\RITONAVIR
     Indication: COVID-19 pneumonia
     Dosage: 1 IU, 2X/DAY
     Route: 048
     Dates: start: 20230517, end: 20230523
  3. SODIUM CHLORIDE [Concomitant]
     Active Substance: SODIUM CHLORIDE
     Indication: COVID-19 pneumonia
     Dosage: 50 ML, 2X/DAY
     Route: 041
     Dates: start: 20230517, end: 20230518

REACTIONS (4)
  - Drug interaction [Recovering/Resolving]
  - Drug level increased [Recovering/Resolving]
  - Liver injury [Recovering/Resolving]
  - Off label use [Unknown]

NARRATIVE: CASE EVENT DATE: 20230517
